FAERS Safety Report 12738032 (Version 2)
Quarter: 2016Q4

REPORT INFORMATION
  Report Type: Spontaneous
  Country: US (occurrence: US)
  Receive Date: 20160912
  Receipt Date: 20161117
  Transmission Date: 20170207
  Serious: No
  Sender: FDA-Public Use
  Company Number: US-SA-2016SA151911

PATIENT
  Age: 49 Year
  Sex: Female

DRUGS (4)
  1. TOUJEO [Suspect]
     Active Substance: INSULIN GLARGINE
     Dosage: DOSE:50 UNIT(S)
     Route: 065
     Dates: start: 2015
  2. SOLOSTAR [Suspect]
     Active Substance: DEVICE
     Dates: start: 2015
  3. TOUJEO [Suspect]
     Active Substance: INSULIN GLARGINE
     Dosage: DOSE:50 UNIT(S)
     Route: 065
     Dates: start: 2015
  4. SOLOSTAR [Suspect]
     Active Substance: DEVICE
     Dates: start: 2015

REACTIONS (4)
  - Headache [Unknown]
  - Wrong technique in product usage process [Unknown]
  - Nausea [Unknown]
  - Malaise [Unknown]
